FAERS Safety Report 15498057 (Version 1)
Quarter: 2018Q4

REPORT INFORMATION
  Report Type: Spontaneous
  Country: US (occurrence: US)
  Receive Date: 20181014
  Receipt Date: 20181014
  Transmission Date: 20190205
  Serious: No
  Sender: FDA-Public Use
  Company Number: None

PATIENT
  Age: 56 Year
  Sex: Female
  Weight: 69.3 kg

DRUGS (20)
  1. ALENDRONATE SODIUM TABLETS, USP [Suspect]
     Active Substance: ALENDRONATE SODIUM
     Indication: OSTEOPOROSIS
     Dosage: ?          QUANTITY:1 TABLET(S);OTHER FREQUENCY:ONCE A WEEK;?
     Route: 048
     Dates: start: 20180414, end: 20180414
  2. VITAMIN D3 [Concomitant]
     Active Substance: CHOLECALCIFEROL
  3. ALBUTEROL. [Concomitant]
     Active Substance: ALBUTEROL
  4. RHINOCORT [Concomitant]
     Active Substance: BUDESONIDE
  5. CALCIUM [Concomitant]
     Active Substance: CALCIUM
  6. VITAMIN B12 [Concomitant]
     Active Substance: CYANOCOBALAMIN
  7. FISH OIL [Concomitant]
     Active Substance: FISH OIL
  8. BIOTIN [Concomitant]
     Active Substance: BIOTIN
  9. MULTI VITAMIN [Concomitant]
     Active Substance: VITAMINS
  10. ZINC. [Concomitant]
     Active Substance: ZINC
  11. CYTOMEL [Concomitant]
     Active Substance: LIOTHYRONINE SODIUM
  12. SYNTHROID [Concomitant]
     Active Substance: LEVOTHYROXINE SODIUM
  13. VIT K2 [Concomitant]
  14. PANTOTHENIC ACID (B5) [Concomitant]
  15. PULMICORT TURBUHALER [Concomitant]
     Active Substance: BUDESONIDE
  16. RHODIOLA EXTRACT [Concomitant]
  17. MAGNESIUM [Concomitant]
     Active Substance: MAGNESIUM
  18. CROMOLYN SODIUM. [Concomitant]
     Active Substance: CROMOLYN SODIUM
  19. PROBIOTIC [Concomitant]
     Active Substance: PROBIOTICS NOS
  20. IRON [Concomitant]
     Active Substance: IRON

REACTIONS (2)
  - Fatigue [None]
  - Pain in extremity [None]

NARRATIVE: CASE EVENT DATE: 20180414
